FAERS Safety Report 8239130-5 (Version None)
Quarter: 2012Q1

REPORT INFORMATION
  Report Type: 
  Country: None (occurrence: None)
  Receive Date: 20120328
  Receipt Date: 20120319
  Transmission Date: 20120608
  Serious: Yes (Hospitalization, Other)
  Sender: FDA-Public Use
  Company Number: US-BIOGENIDEC-2010BI028389

PATIENT
  Age: 60 Year
  Sex: Female
  Weight: 56 kg

DRUGS (23)
  1. PROVIGIL [Concomitant]
  2. LORCET-HD [Concomitant]
     Indication: PAIN
     Dates: start: 20100830, end: 20101023
  3. BACLOFEN [Concomitant]
     Dates: start: 20101103
  4. TYLENOL [Concomitant]
  5. CYMBALTA [Concomitant]
     Indication: PAIN
     Route: 048
     Dates: start: 20100825
  6. FENTANYL-100 [Concomitant]
     Indication: PAIN
  7. VITAMIN D [Concomitant]
  8. EFFEXOR [Concomitant]
     Dates: start: 20101103
  9. AVONEX [Concomitant]
     Indication: MULTIPLE SCLEROSIS
     Route: 030
     Dates: start: 20010409
  10. VERAPAMIL EXTENDED-RELEASE [Concomitant]
  11. FENTANYL-100 [Concomitant]
     Route: 061
     Dates: start: 20100923
  12. LUNESTA [Concomitant]
  13. LYRICA [Concomitant]
  14. ENABLEX [Concomitant]
  15. PREMPRO [Concomitant]
  16. BENICAR [Concomitant]
     Indication: HYPERTENSION
     Route: 048
     Dates: start: 20100826
  17. ALPRAZOLAM [Concomitant]
     Route: 048
     Dates: start: 20101103
  18. BACLOFEN [Concomitant]
     Indication: MUSCLE SPASTICITY
     Route: 048
     Dates: start: 20101014, end: 20101020
  19. TYSABRI [Suspect]
     Indication: MULTIPLE SCLEROSIS
     Route: 042
     Dates: start: 20070920, end: 20100806
  20. RESTORIL [Concomitant]
  21. CYMBALTA [Concomitant]
     Indication: DEPRESSION
     Route: 048
     Dates: start: 20100825
  22. CALCIUM CARBONATE [Concomitant]
  23. ALPRAZOLAM [Concomitant]
     Indication: ANXIETY
     Route: 048
     Dates: start: 20100831, end: 20101024

REACTIONS (4)
  - PROGRESSIVE MULTIFOCAL LEUKOENCEPHALOPATHY [None]
  - URINARY TRACT INFECTION [None]
  - GRAND MAL CONVULSION [None]
  - PNEUMONIA ASPIRATION [None]
